FAERS Safety Report 6279641-5 (Version None)
Quarter: 2009Q3

REPORT INFORMATION
  Report Type: 
  Country: None (occurrence: None)
  Receive Date: 20090723
  Receipt Date: 20090715
  Transmission Date: 20100115
  Serious: Yes (Hospitalization)
  Sender: FDA-Public Use
  Company Number: KR-ELI_LILLY_AND_COMPANY-KR200905003379

PATIENT
  Age: 68 Year
  Sex: Male

DRUGS (4)
  1. HUMALOG MIX 75/25 [Suspect]
     Indication: TYPE 2 DIABETES MELLITUS
     Dosage: 10 U, EACH MORNING
     Route: 058
     Dates: start: 20090515, end: 20090707
  2. HUMALOG MIX 75/25 [Suspect]
     Dosage: 26 U, EACH MORNING
     Route: 058
     Dates: start: 20090501, end: 20090707
  3. HUMALOG MIX 75/25 [Suspect]
     Dosage: 12 U, EACH EVENING
     Route: 058
     Dates: start: 20090501, end: 20090707
  4. LANTUS [Concomitant]
     Dosage: UNK, UNKNOWN
     Route: 065

REACTIONS (1)
  - HYPERGLYCAEMIA [None]
